FAERS Safety Report 25433947 (Version 8)
Quarter: 2025Q3

REPORT INFORMATION
  Report Type: Spontaneous
  Country: US (occurrence: US)
  Receive Date: 20250613
  Receipt Date: 20250911
  Transmission Date: 20251021
  Serious: Yes (Hospitalization)
  Sender: ROCHE
  Company Number: US-ROCHE-10000306050

PATIENT
  Age: 48 Year
  Sex: Male
  Weight: 59.87 kg

DRUGS (7)
  1. OCREVUS [Suspect]
     Active Substance: OCRELIZUMAB
     Indication: Relapsing-remitting multiple sclerosis
     Dosage: OCRELIZUMAB WAS GIVEN ON 12-JUL-2022, 26-JUN-2023, 27/DEC/2023, -JUL-2024
     Route: 042
     Dates: start: 2020, end: 202407
  2. BRIUMVI [Suspect]
     Active Substance: UBLITUXIMAB-XIIY
     Indication: Relapsing-remitting multiple sclerosis
     Route: 065
     Dates: start: 20240708
  3. BRIUMVI [Suspect]
     Active Substance: UBLITUXIMAB-XIIY
     Route: 042
     Dates: start: 202406, end: 202406
  4. BRIUMVI [Suspect]
     Active Substance: UBLITUXIMAB-XIIY
     Route: 065
     Dates: start: 20241223
  5. VITAMINS [Concomitant]
     Active Substance: VITAMINS
  6. HUMAN IMMUNOGLOBULIN G [Concomitant]
     Active Substance: HUMAN IMMUNOGLOBULIN G
  7. COPAXONE [Concomitant]
     Active Substance: GLATIRAMER ACETATE

REACTIONS (8)
  - Progressive multifocal leukoencephalopathy [Not Recovered/Not Resolved]
  - Encephalopathy [Unknown]
  - Apraxia [Unknown]
  - Aphasia [Not Recovered/Not Resolved]
  - Multiple sclerosis [Unknown]
  - Bladder disorder [Not Recovered/Not Resolved]
  - B-lymphocyte count decreased [Unknown]
  - Peroneal nerve palsy [Unknown]

NARRATIVE: CASE EVENT DATE: 20241201
